FAERS Safety Report 4738243-X (Version None)
Quarter: 2005Q3

REPORT INFORMATION
  Report Type: 
  Country: None (occurrence: None)
  Receive Date: 20050808
  Receipt Date: 20050808
  Transmission Date: 20060218
  Serious: Yes (Hospitalization)
  Sender: FDA-Public Use
  Company Number: None

PATIENT
  Age: 50 Year
  Sex: Female
  Weight: 63.5 kg

DRUGS (2)
  1. LITHIUM CITRATE [Suspect]
     Indication: BIPOLAR DISORDER
     Dosage: SUSPENSION 100 MG PO DAILY - 1 DOSE GIVEN
     Route: 048
  2. LITHIUM CITRATE [Suspect]
     Indication: DEPRESSION
     Dosage: SUSPENSION 100 MG PO DAILY - 1 DOSE GIVEN
     Route: 048

REACTIONS (2)
  - INTERCEPTED MEDICATION ERROR [None]
  - MEDICATION ERROR [None]
